FAERS Safety Report 8103018-0 (Version None)
Quarter: 2012Q1

REPORT INFORMATION
  Report Type: 
  Country: None (occurrence: None)
  Receive Date: 20120201
  Receipt Date: 20120201
  Transmission Date: 20120608
  Serious: Yes (Life-Threatening)
  Sender: FDA-Public Use
  Company Number: None

PATIENT
  Age: 50 Year
  Sex: Male
  Weight: 107 kg

DRUGS (2)
  1. METHADONE HCL [Suspect]
  2. QUINOLONE [Concomitant]

REACTIONS (1)
  - TORSADE DE POINTES [None]
